FAERS Safety Report 8326997-5 (Version None)
Quarter: 2012Q2

REPORT INFORMATION
  Report Type: 
  Country: None (occurrence: None)
  Receive Date: 20120501
  Receipt Date: 20120426
  Transmission Date: 20120825
  Serious: Yes (Life-Threatening, Hospitalization)
  Sender: FDA-Public Use
  Company Number: ES-ROCHE-1061530

PATIENT
  Sex: Female

DRUGS (4)
  1. RITUXIMAB [Suspect]
     Indication: B-CELL LYMPHOMA
     Route: 042
     Dates: start: 20120208, end: 20120208
  2. CYCLOPHOSPHAMIDE [Concomitant]
     Indication: B-CELL LYMPHOMA
  3. PREDNISONE [Concomitant]
     Indication: B-CELL LYMPHOMA
  4. VINCRISTINE [Concomitant]
     Indication: B-CELL LYMPHOMA

REACTIONS (3)
  - PULMONARY FIBROSIS [None]
  - FEBRILE NEUTROPENIA [None]
  - INTERSTITIAL LUNG DISEASE [None]
